FAERS Safety Report 19999462 (Version 1)
Quarter: 2021Q4

REPORT INFORMATION
  Report Type: Spontaneous
  Country: JP (occurrence: JP)
  Receive Date: 20211027
  Receipt Date: 20211027
  Transmission Date: 20220303
  Serious: Yes (Hospitalization, Other)
  Sender: FDA-Public Use
  Company Number: JP-NBI-S202100323BIPI

PATIENT
  Age: 38 Year
  Sex: Female

DRUGS (2)
  1. MICARDIS [Suspect]
     Active Substance: TELMISARTAN
     Indication: Suicide attempt
     Route: 048
  2. TRAMADOL HYDROCHLORIDE [Concomitant]
     Active Substance: TRAMADOL HYDROCHLORIDE
     Indication: Product used for unknown indication
     Route: 048

REACTIONS (2)
  - Overdose [Recovered/Resolved]
  - Shock [Recovered/Resolved]
